FAERS Safety Report 24055624 (Version 1)
Quarter: 2024Q3

REPORT INFORMATION
  Report Type: Report from Study
  Country: CN (occurrence: CN)
  Receive Date: 20240705
  Receipt Date: 20240705
  Transmission Date: 20241017
  Serious: Yes (Hospitalization)
  Sender: BAYER
  Company Number: CN-BAYER-2024A092028

PATIENT
  Age: 69 Year
  Sex: Male

DRUGS (1)
  1. NEXAVAR [Suspect]
     Active Substance: SORAFENIB
     Indication: Renal cell carcinoma
     Dosage: UNK

REACTIONS (4)
  - Thrombosis [Unknown]
  - Disease recurrence [Unknown]
  - Cerebral haemorrhage [Unknown]
  - Movement disorder [Unknown]
